FAERS Safety Report 23384048 (Version 1)
Quarter: 2024Q1

REPORT INFORMATION
  Report Type: Spontaneous
  Country: CN (occurrence: CN)
  Receive Date: 20240109
  Receipt Date: 20240109
  Transmission Date: 20240410
  Serious: Yes (Other)
  Sender: FDA-Public Use
  Company Number: CN-MYLANLABS-2024M1002330

PATIENT
  Age: 55 Year
  Sex: Male
  Weight: 46 kg

DRUGS (3)
  1. CELEBREX [Suspect]
     Active Substance: CELECOXIB
     Indication: Gout
     Dosage: 200 MILLIGRAM, QD
     Route: 048
     Dates: start: 20231112, end: 20231113
  2. PIPERACILLIN SODIUM\TAZOBACTAM SODIUM [Suspect]
     Active Substance: PIPERACILLIN SODIUM\TAZOBACTAM SODIUM
     Indication: Infection
     Dosage: 4.5 GRAM, TID
     Route: 042
     Dates: start: 20231111, end: 20231114
  3. PANTOPRAZOLE SODIUM [Suspect]
     Active Substance: PANTOPRAZOLE SODIUM
     Indication: Antacid therapy
     Dosage: 40 MILLIGRAM, QD
     Route: 048
     Dates: start: 20231110, end: 20231114

REACTIONS (2)
  - Liver injury [Recovering/Resolving]
  - Condition aggravated [Recovering/Resolving]

NARRATIVE: CASE EVENT DATE: 20231114
